FAERS Safety Report 5213457-3 (Version None)
Quarter: 2007Q1

REPORT INFORMATION
  Report Type: 
  Country: None (occurrence: None)
  Receive Date: 20070119
  Receipt Date: 20070116
  Transmission Date: 20070707
  Serious: Yes (Hospitalization)
  Sender: FDA-Public Use
  Company Number: JP-BRISTOL-MYERS SQUIBB COMPANY-13645569

PATIENT
  Age: 61 Year
  Sex: Female

DRUGS (2)
  1. TAXOL [Suspect]
     Indication: UTERINE CANCER
     Route: 041
     Dates: start: 20060714, end: 20060714
  2. PARAPLATIN [Suspect]
     Indication: UTERINE CANCER
     Route: 041
     Dates: start: 20060714, end: 20060714

REACTIONS (1)
  - INTERSTITIAL LUNG DISEASE [None]
